FAERS Safety Report 7060894-0 (Version None)
Quarter: 2010Q4

REPORT INFORMATION
  Report Type: 
  Country: None (occurrence: None)
  Receive Date: 20101025
  Receipt Date: 20101019
  Transmission Date: 20110411
  Serious: Yes (Other)
  Sender: FDA-Public Use
  Company Number: DE-GILEAD-2010-0032288

PATIENT
  Sex: Female
  Weight: 58 kg

DRUGS (5)
  1. VIREAD [Suspect]
     Indication: PRODUCT USED FOR UNKNOWN INDICATION
  2. TRIZIVIR [Concomitant]
  3. NORVIR [Concomitant]
  4. PREZISTA [Concomitant]
  5. ISENTRESS [Concomitant]

REACTIONS (2)
  - POLYHYDRAMNIOS [None]
  - PREGNANCY [None]
